FAERS Safety Report 17864712 (Version 7)
Quarter: 2025Q3

REPORT INFORMATION
  Report Type: Spontaneous
  Country: EU (occurrence: EU)
  Receive Date: 20200605
  Receipt Date: 20250911
  Transmission Date: 20251020
  Serious: Yes (Death, Hospitalization, Other)
  Sender: ROCHE
  Company Number: EU-VELOXIS PHARMACEUTICALS-2020VELPL-000306

PATIENT
  Age: 61 Year
  Sex: Female

DRUGS (5)
  1. GANCICLOVIR [Suspect]
     Active Substance: GANCICLOVIR
     Indication: Cytomegalovirus infection reactivation
     Route: 065
  2. VALGANCICLOVIR [Suspect]
     Active Substance: VALGANCICLOVIR
     Indication: Cytomegalovirus infection reactivation
     Route: 065
  3. MYCOPHENOLATE MOFETIL [Suspect]
     Active Substance: MYCOPHENOLATE MOFETIL
     Indication: Graft versus host disease
     Route: 065
  4. METHYLPREDNISOLONE [Suspect]
     Active Substance: METHYLPREDNISOLONE
     Indication: Graft versus host disease
     Route: 065
  5. ENVARSUS XR [Suspect]
     Active Substance: TACROLIMUS
     Indication: Graft versus host disease
     Route: 065

REACTIONS (4)
  - Cytomegalovirus infection reactivation [Fatal]
  - Infection [Fatal]
  - Pancytopenia [Not Recovered/Not Resolved]
  - Off label use [Unknown]
